FAERS Safety Report 9713041 (Version 1)
Quarter: 2013Q4

REPORT INFORMATION
  Report Type: Spontaneous
  Country: US (occurrence: US)
  Receive Date: 20131126
  Receipt Date: 20131126
  Transmission Date: 20140711
  Serious: No
  Sender: FDA-Public Use
  Company Number: US-BRISTOL-MYERS SQUIBB COMPANY-19390723

PATIENT
  Age: 51 Year
  Sex: Male
  Weight: 126.98 kg

DRUGS (1)
  1. BYDUREON [Suspect]
     Indication: TYPE 2 DIABETES MELLITUS
     Dates: start: 2013

REACTIONS (6)
  - Drug administration error [Unknown]
  - Underdose [Unknown]
  - Product quality issue [Unknown]
  - Injection site injury [Unknown]
  - Nausea [Unknown]
  - Dyspepsia [Unknown]
